FAERS Safety Report 5528784-X (Version None)
Quarter: 2007Q4

REPORT INFORMATION
  Report Type: 
  Country: None (occurrence: None)
  Receive Date: 20071129
  Receipt Date: 20071121
  Transmission Date: 20080405
  Serious: Yes (Hospitalization)
  Sender: FDA-Public Use
  Company Number: SE-NOVOPROD-269581

PATIENT
  Age: 67 Year
  Sex: Female

DRUGS (7)
  1. ACTIVELLE [Suspect]
     Indication: DRUG USE FOR UNKNOWN INDICATION
     Dosage: UNK, UNK
  2. HERBAL PREPARATION [Suspect]
  3. KALCIPOS-D [Concomitant]
  4. OMEPRAZOL                          /00661201/ [Concomitant]
  5. METFORMIN HCL [Concomitant]
  6. METOTREXATE [Concomitant]
  7. PLENDIL [Concomitant]
     Dosage: 5 MG, QD

REACTIONS (1)
  - CEREBELLAR INFARCTION [None]
